FAERS Safety Report 7585635-X (Version None)
Quarter: 2011Q3

REPORT INFORMATION
  Report Type: 
  Country: None (occurrence: None)
  Receive Date: 20110701
  Receipt Date: 20110701
  Transmission Date: 20111222
  Serious: Yes (Life-Threatening)
  Sender: FDA-Public Use
  Company Number: None

PATIENT
  Sex: Male
  Weight: 54.431 kg

DRUGS (1)
  1. CELEXA [Suspect]

REACTIONS (4)
  - FEELING ABNORMAL [None]
  - THINKING ABNORMAL [None]
  - CONFUSIONAL STATE [None]
  - SUICIDAL IDEATION [None]
